FAERS Safety Report 5786127-0 (Version None)
Quarter: 2008Q2

REPORT INFORMATION
  Report Type: 
  Country: None (occurrence: None)
  Receive Date: 20080624
  Receipt Date: 20080617
  Transmission Date: 20081010
  Serious: Yes (Hospitalization, Other)
  Sender: FDA-Public Use
  Company Number: PA-ABBOTT-08P-125-0459124-00

PATIENT
  Sex: Male

DRUGS (2)
  1. AKINETON [Suspect]
     Indication: EXTRAPYRAMIDAL DISORDER
     Dosage: 5 MG DAILY
     Route: 030
     Dates: start: 20071108, end: 20071108
  2. CARBAMACEPINE [Concomitant]
     Indication: DRUG USE FOR UNKNOWN INDICATION

REACTIONS (5)
  - ASTHENIA [None]
  - CONFUSIONAL STATE [None]
  - DISORIENTATION [None]
  - HALLUCINATION [None]
  - INCOHERENT [None]
